FAERS Safety Report 4493844-1 (Version None)
Quarter: 2004Q4

REPORT INFORMATION
  Report Type: 
  Country: None (occurrence: None)
  Receive Date: 20041102
  Receipt Date: 20041019
  Transmission Date: 20050328
  Serious: Yes (Other)
  Sender: FDA-Public Use
  Company Number: 2004240453GB

PATIENT
  Age: 51 Year
  Sex: Male
  Weight: 82 kg

DRUGS (4)
  1. SOLU-MEDROL [Suspect]
     Indication: PLANTAR FASCIITIS
     Dosage: IV
     Route: 042
  2. DEPO-MEDRONE WITH LIDOCAINE (METHYLPREDNISOLONE, LIDOCAINE) SUSPENSION [Suspect]
     Indication: PLANTAR FASCIITIS
     Dosage: IV
     Route: 042
     Dates: start: 20040618, end: 20040618
  3. ETORICOXIB() [Suspect]
     Indication: PAIN
     Dosage: 60 MG, BID, ORAL
     Route: 048
  4. CARBAMAZEPINE [Concomitant]

REACTIONS (3)
  - DRUG INTERACTION [None]
  - RASH FOLLICULAR [None]
  - RASH PRURITIC [None]
